FAERS Safety Report 20065698 (Version 1)
Quarter: 2021Q4

REPORT INFORMATION
  Report Type: Report from Study
  Country: BR (occurrence: BR)
  Receive Date: 20211113
  Receipt Date: 20211113
  Transmission Date: 20220303
  Serious: Yes (Hospitalization)
  Sender: FDA-Public Use
  Company Number: BR-NOVARTISPH-NVSC2021BR258009

PATIENT
  Age: 40 Year
  Sex: Female

DRUGS (4)
  1. ZOMETA [Suspect]
     Active Substance: ZOLEDRONIC ACID
     Indication: Product used for unknown indication
     Dosage: 4 MG
     Route: 065
     Dates: start: 20200727
  2. ZOLADEX [Concomitant]
     Active Substance: GOSERELIN ACETATE
     Indication: Product used for unknown indication
     Dosage: 10.8 MG
     Route: 065
     Dates: start: 20200727
  3. TAXOL [Concomitant]
     Active Substance: PACLITAXEL
     Indication: Product used for unknown indication
     Dosage: 80 MG/M2, QW
     Route: 065
     Dates: start: 20201109, end: 20210225
  4. CARBOPLATIN [Concomitant]
     Active Substance: CARBOPLATIN
     Indication: Product used for unknown indication
     Dosage: AUC: 2, QW
     Route: 065
     Dates: start: 20201109, end: 20210225

REACTIONS (4)
  - Pancytopenia [Unknown]
  - Anaemia [Unknown]
  - Fatigue [Unknown]
  - Emotional distress [Unknown]
